FAERS Safety Report 24910420 (Version 3)
Quarter: 2025Q2

REPORT INFORMATION
  Report Type: Spontaneous
  Country: CZ (occurrence: CZ)
  Receive Date: 20250131
  Receipt Date: 20250627
  Transmission Date: 20250717
  Serious: Yes (Other)
  Sender: SANOFI AVENTIS
  Company Number: CZ-SA-2025SA029137

PATIENT
  Age: 26 Year
  Sex: Female
  Weight: 125 kg

DRUGS (3)
  1. DUPILUMAB [Suspect]
     Active Substance: DUPILUMAB
     Indication: Dermatitis atopic
     Dates: start: 20231002
  2. DUPILUMAB [Suspect]
     Active Substance: DUPILUMAB
     Route: 058
     Dates: start: 20240219
  3. DUPILUMAB [Suspect]
     Active Substance: DUPILUMAB
     Dosage: 300 MG, QOW
     Route: 058
     Dates: start: 2024, end: 202501

REACTIONS (3)
  - Idiopathic intracranial hypertension [Unknown]
  - Pseudopapilloedema [Unknown]
  - Skin disorder [Unknown]

NARRATIVE: CASE EVENT DATE: 20250120
